FAERS Safety Report 6405166-X (Version None)
Quarter: 2009Q4

REPORT INFORMATION
  Report Type: 
  Country: None (occurrence: None)
  Receive Date: 20091019
  Receipt Date: 20091008
  Transmission Date: 20100525
  Serious: Yes (Other)
  Sender: FDA-Public Use
  Company Number: JP-ASTRAZENECA-2009SE19274

PATIENT

DRUGS (1)
  1. XYLOCAINE W/ EPINEPHRINE [Suspect]
     Route: 061
     Dates: start: 20091008, end: 20091008

REACTIONS (2)
  - CYANOSIS [None]
  - DRUG ADMINISTRATION ERROR [None]
